FAERS Safety Report 15782146 (Version 1)
Quarter: 2019Q1

REPORT INFORMATION
  Report Type: Spontaneous
  Country: US (occurrence: US)
  Receive Date: 20190102
  Receipt Date: 20190102
  Transmission Date: 20190417
  Serious: No
  Sender: FDA-Public Use
  Company Number: US-GLAXOSMITHKLINE-US2018230994

PATIENT
  Sex: Female

DRUGS (1)
  1. BENLYSTA [Suspect]
     Active Substance: BELIMUMAB
     Indication: PRODUCT USED FOR UNKNOWN INDICATION
     Dosage: UNK
     Route: 058
     Dates: start: 201811

REACTIONS (6)
  - Injection site pain [Unknown]
  - Pruritus [Unknown]
  - Injection site mass [Unknown]
  - Injection site swelling [Unknown]
  - Injection site bruising [Unknown]
  - Expired product administered [Unknown]
